FAERS Safety Report 18838142 (Version 1)
Quarter: 2021Q1

REPORT INFORMATION
  Report Type: Spontaneous
  Country: US (occurrence: US)
  Receive Date: 20210203
  Receipt Date: 20210203
  Transmission Date: 20210419
  Serious: No
  Sender: FDA-Public Use
  Company Number: US-ALLERGAN-2047757US

PATIENT
  Age: 74 Year
  Sex: Female

DRUGS (3)
  1. LIOTHYRONINE [Concomitant]
     Active Substance: LIOTHYRONINE
     Indication: HORMONE REPLACEMENT THERAPY
     Dosage: 5 ?G
  2. BOTOX [Suspect]
     Active Substance: ONABOTULINUMTOXINA
     Indication: HYPERTONIC BLADDER
     Dosage: UNK UNK, SINGLE
     Route: 065
     Dates: start: 202008, end: 202008
  3. LEVOTHYROXINE. [Concomitant]
     Active Substance: LEVOTHYROXINE
     Indication: HYPOTHYROIDISM
     Dosage: 137 ?G

REACTIONS (1)
  - Therapeutic response decreased [Unknown]
